FAERS Safety Report 9374163 (Version 1)
Quarter: 2013Q2

REPORT INFORMATION
  Report Type: Spontaneous
  Country: US (occurrence: None)
  Receive Date: 20130627
  Receipt Date: 20130627
  Transmission Date: 20140414
  Serious: Yes (Life-Threatening, Other)
  Sender: FDA-Public Use
  Company Number: None

PATIENT
  Age: 55 Year
  Sex: Female
  Weight: 81.19 kg

DRUGS (1)
  1. SERTRALINE HCL [Suspect]
     Indication: DEPRESSION
     Dosage: 150 MG DAILY PO
     Route: 048
     Dates: start: 20120830, end: 20130601

REACTIONS (8)
  - Depression [None]
  - Suicidal ideation [None]
  - Amnesia [None]
  - Panic attack [None]
  - Impaired work ability [None]
  - Thinking abnormal [None]
  - Cognitive disorder [None]
  - Impaired driving ability [None]
